FAERS Safety Report 9490660 (Version 1)
Quarter: 2013Q3

REPORT INFORMATION
  Report Type: Spontaneous
  Country: US (occurrence: None)
  Receive Date: 20130828
  Receipt Date: 20130828
  Transmission Date: 20140515
  Serious: Yes (Hospitalization)
  Sender: FDA-Public Use
  Company Number: None

PATIENT
  Age: 53 Year
  Sex: Male
  Weight: 77.11 kg

DRUGS (14)
  1. MULTIHANCE [Suspect]
     Indication: SCAN WITH CONTRAST
     Dosage: 0.1 MMOL/KG = 16 ML -- INTRAVENOUS
     Route: 042
     Dates: start: 20130723
  2. LORAZEPAM [Concomitant]
  3. ALLOPURINOL [Concomitant]
  4. AMLODIPINE [Concomitant]
  5. CITALOPRAM [Concomitant]
  6. CLONIDINE [Concomitant]
  7. DIAZEPAM [Concomitant]
  8. MAGNESIUM CHLORIDE [Concomitant]
  9. CELLCEPT [Concomitant]
  10. OMEPRAZOLE [Concomitant]
  11. OPANA [Concomitant]
  12. PREDNISONE [Concomitant]
  13. SIROLIMUS [Concomitant]
  14. TESTOSTERONE [Concomitant]

REACTIONS (3)
  - Urticaria [None]
  - Rash [None]
  - Dyspnoea [None]
